FAERS Safety Report 11840970 (Version 1)
Quarter: 2015Q4

REPORT INFORMATION
  Report Type: Spontaneous
  Country: US (occurrence: US)
  Receive Date: 20151216
  Receipt Date: 20151216
  Transmission Date: 20160305
  Serious: No
  Sender: FDA-Public Use
  Company Number: US-ASTRAZENECA-2015SF24099

PATIENT
  Sex: Male
  Weight: 133.8 kg

DRUGS (19)
  1. LANTUS [Concomitant]
     Active Substance: INSULIN GLARGINE
  2. HYDROCODONE BITARTRATE AND ACETAMINOPHEN [Concomitant]
     Active Substance: ACETAMINOPHEN\HYDROCODONE BITARTRATE
     Indication: ARTHRALGIA
     Dosage: 5-325MG AS REQUIRED
  3. NOVOLOG [Concomitant]
     Active Substance: INSULIN ASPART
     Dosage: SLIDING SCALE WITH MEALS BID TO TID
  4. MULTIVITAMIN [Concomitant]
     Active Substance: VITAMINS
     Dosage: DAILY
  5. CARVEDILOL. [Concomitant]
     Active Substance: CARVEDILOL
  6. CHLOR-TRIMETON [Concomitant]
     Active Substance: CHLORPHENIRAMINE MALEATE
     Indication: MULTIPLE ALLERGIES
     Dosage: TWO TIMES A DAY
  7. BISOPROLOL FUMARATE. [Concomitant]
     Active Substance: BISOPROLOL FUMARATE
  8. COENZYME Q10 [Concomitant]
     Active Substance: UBIDECARENONE
     Dosage: DAILY
  9. DILTIAZEM [Concomitant]
     Active Substance: DILTIAZEM
  10. ELIQUIS [Concomitant]
     Active Substance: APIXABAN
  11. LOSARTAN. [Concomitant]
     Active Substance: LOSARTAN
  12. METFORMIN [Concomitant]
     Active Substance: METFORMIN HYDROCHLORIDE
  13. BYDUREON [Suspect]
     Active Substance: EXENATIDE
     Indication: TYPE 2 DIABETES MELLITUS
     Route: 058
  14. ASPIRIN. [Concomitant]
     Active Substance: ASPIRIN
  15. FLAXSEED [Concomitant]
     Active Substance: FLAX SEED
  16. ATORVASTATIN [Concomitant]
     Active Substance: ATORVASTATIN
  17. FUROSEMIDE. [Concomitant]
     Active Substance: FUROSEMIDE
  18. OMEPRAZOLE. [Concomitant]
     Active Substance: OMEPRAZOLE
  19. VITAMIN C [Concomitant]
     Active Substance: ASCORBIC ACID

REACTIONS (4)
  - Lymphoedema [Not Recovered/Not Resolved]
  - Product quality issue [Unknown]
  - Injection site pain [Recovered/Resolved]
  - Injection site pain [Unknown]
